FAERS Safety Report 13630591 (Version 1)
Quarter: 2017Q2

REPORT INFORMATION
  Report Type: Report from Study
  Country: US (occurrence: US)
  Receive Date: 20170608
  Receipt Date: 20170608
  Transmission Date: 20170830
  Serious: Yes (Other)
  Sender: FDA-Public Use
  Company Number: US-TAKEDA-2016TUS016894

PATIENT
  Sex: Male

DRUGS (2)
  1. VEDOLIZUMAB [Suspect]
     Active Substance: VEDOLIZUMAB
     Indication: COLITIS
  2. VEDOLIZUMAB [Suspect]
     Active Substance: VEDOLIZUMAB
     Indication: CROHN^S DISEASE
     Dosage: 300 MG, UNK
     Route: 042

REACTIONS (8)
  - Anger [Unknown]
  - Diarrhoea [Unknown]
  - Frustration tolerance decreased [Unknown]
  - Vomiting [Unknown]
  - Drug ineffective [Unknown]
  - Knee arthroplasty [Recovering/Resolving]
  - Malaise [Unknown]
  - Stress [Unknown]
